FAERS Safety Report 5398243-6 (Version None)
Quarter: 2007Q3

REPORT INFORMATION
  Report Type: 
  Country: None (occurrence: None)
  Receive Date: 20070726
  Receipt Date: 20070719
  Transmission Date: 20080115
  Serious: Yes (Hospitalization)
  Sender: FDA-Public Use
  Company Number: AU-BOEHRINGER INGELHEIM PHARMACEUTICALS, INC.-2007-BP-17813AU

PATIENT

DRUGS (1)
  1. MOBIC [Suspect]
     Route: 048

REACTIONS (1)
  - RECTAL HAEMORRHAGE [None]
